FAERS Safety Report 13787484 (Version 1)
Quarter: 2017Q3

REPORT INFORMATION
  Report Type: Spontaneous
  Country: US (occurrence: US)
  Receive Date: 20170725
  Receipt Date: 20170725
  Transmission Date: 20171127
  Serious: No
  Sender: FDA-Public Use
  Company Number: US-JNJFOC-20170706134

PATIENT
  Age: 92 Year
  Sex: Female
  Weight: 83.46 kg

DRUGS (2)
  1. TYLENOL EXTRA STRENGTH [Suspect]
     Active Substance: ACETAMINOPHEN
     Indication: MUSCLE STRAIN
     Route: 048
     Dates: start: 20170703
  2. ADVIL [Concomitant]
     Active Substance: IBUPROFEN
     Indication: MUSCLE STRAIN
     Route: 065
     Dates: start: 20170703

REACTIONS (4)
  - Dizziness [Not Recovered/Not Resolved]
  - Drug prescribing error [Not Recovered/Not Resolved]
  - Off label use [Not Recovered/Not Resolved]
  - Inappropriate schedule of drug administration [Not Recovered/Not Resolved]

NARRATIVE: CASE EVENT DATE: 20170703
